FAERS Safety Report 8448489-5 (Version None)
Quarter: 2012Q2

REPORT INFORMATION
  Report Type: 
  Country: None (occurrence: None)
  Receive Date: 20120619
  Receipt Date: 20120607
  Transmission Date: 20120825
  Serious: Yes (Other)
  Sender: FDA-Public Use
  Company Number: PL-BRISTOL-MYERS SQUIBB COMPANY-16571424

PATIENT
  Age: 26 Year
  Sex: Female

DRUGS (1)
  1. MITOTANE [Suspect]
     Indication: ADRENAL CARCINOMA

REACTIONS (2)
  - ABORTION MISSED [None]
  - TWIN PREGNANCY [None]
